FAERS Safety Report 8028922-3 (Version None)
Quarter: 2012Q1

REPORT INFORMATION
  Report Type: 
  Country: None (occurrence: None)
  Receive Date: 20120106
  Receipt Date: 20111216
  Transmission Date: 20120608
  Serious: No
  Sender: FDA-Public Use
  Company Number: US-BAYER-2011-119441

PATIENT
  Age: 73 Year
  Sex: Male
  Weight: 61 kg

DRUGS (4)
  1. ANTIHYPERTENSIVES [Concomitant]
  2. ALEVE (CAPLET) [Suspect]
     Indication: BACK PAIN
     Dosage: 2 DF, BID
  3. ANTI-DIABETICS [Concomitant]
  4. ALL OTHER THERAPEUTIC PRODUCTS [Suspect]

REACTIONS (1)
  - NO ADVERSE EVENT [None]
